FAERS Safety Report 24221618 (Version 1)
Quarter: 2024Q3

REPORT INFORMATION
  Report Type: Spontaneous
  Country: US (occurrence: US)
  Receive Date: 20240819
  Receipt Date: 20240819
  Transmission Date: 20241017
  Serious: No
  Sender: ROCHE
  Company Number: US-ROCHE-10000059787

PATIENT
  Age: 29 Year
  Sex: Male

DRUGS (2)
  1. XOLAIR [Suspect]
     Active Substance: OMALIZUMAB
     Indication: Product used for unknown indication
     Route: 065
  2. DUPIXENT [Concomitant]
     Active Substance: DUPILUMAB

REACTIONS (4)
  - Hypersensitivity [Unknown]
  - Rash [Unknown]
  - Pain [Unknown]
  - Influenza like illness [Unknown]
